FAERS Safety Report 6767090-2 (Version None)
Quarter: 2010Q2

REPORT INFORMATION
  Report Type: 
  Country: None (occurrence: None)
  Receive Date: 20100614
  Receipt Date: 20100602
  Transmission Date: 20101027
  Serious: Yes (Death, Hospitalization)
  Sender: FDA-Public Use
  Company Number: US-CELGENEUS-163-21880-09121462

PATIENT
  Sex: Male
  Weight: 86.5 kg

DRUGS (21)
  1. REVLIMID [Suspect]
     Route: 048
     Dates: start: 20091109, end: 20091213
  2. RITUXAN [Suspect]
     Route: 051
     Dates: start: 20091014, end: 20091207
  3. AVELOX [Concomitant]
     Indication: DRUG USE FOR UNKNOWN INDICATION
     Route: 065
  4. ACYCLOVIR [Concomitant]
     Indication: DRUG USE FOR UNKNOWN INDICATION
     Route: 048
  5. ATROVENT HFA [Concomitant]
     Indication: DRUG USE FOR UNKNOWN INDICATION
     Dosage: 2 PUFFS
     Route: 055
  6. ATOVAQUONE [Concomitant]
     Route: 065
  7. ALLOPURINOL [Concomitant]
     Indication: DRUG USE FOR UNKNOWN INDICATION
     Route: 048
  8. HYDROMORPHONE HCL [Concomitant]
     Indication: PAIN
     Dosage: 1-2 TABLETS
     Route: 048
  9. PREDNISONE [Concomitant]
     Indication: DRUG USE FOR UNKNOWN INDICATION
     Route: 065
  10. ALEVE (CAPLET) [Concomitant]
     Route: 065
  11. BENADRYL [Concomitant]
     Indication: AGITATION
     Route: 065
  12. LEVAQUIN [Concomitant]
     Indication: DRUG USE FOR UNKNOWN INDICATION
     Route: 065
  13. ZANTAC [Concomitant]
     Indication: DRUG USE FOR UNKNOWN INDICATION
     Route: 065
  14. CIPROFLOXACIN [Concomitant]
     Indication: DRUG USE FOR UNKNOWN INDICATION
     Route: 048
  15. DOXYCYCLINE [Concomitant]
     Indication: DRUG USE FOR UNKNOWN INDICATION
     Route: 048
  16. POSACONAZOLE [Concomitant]
     Indication: DRUG USE FOR UNKNOWN INDICATION
     Route: 048
  17. VALACYCLOVIR [Concomitant]
     Indication: DRUG USE FOR UNKNOWN INDICATION
     Route: 048
  18. LIPITOR [Concomitant]
     Indication: DRUG USE FOR UNKNOWN INDICATION
     Route: 048
  19. LIPITOR [Concomitant]
     Route: 048
  20. ASPIRIN [Concomitant]
     Indication: DRUG USE FOR UNKNOWN INDICATION
     Route: 048
  21. GABAPENTIN [Concomitant]
     Indication: DRUG USE FOR UNKNOWN INDICATION
     Route: 048

REACTIONS (8)
  - AMNESIA [None]
  - CEREBROVASCULAR ACCIDENT [None]
  - FATIGUE [None]
  - JC VIRUS INFECTION [None]
  - MENTAL STATUS CHANGES [None]
  - NECK PAIN [None]
  - NIGHT SWEATS [None]
  - PNEUMONIA [None]
